FAERS Safety Report 20825711 (Version 1)
Quarter: 2022Q2

REPORT INFORMATION
  Report Type: Spontaneous
  Country: US (occurrence: None)
  Receive Date: 20220512
  Receipt Date: 20220512
  Transmission Date: 20220720
  Serious: Yes (Death)
  Sender: FDA-Public Use
  Company Number: None

PATIENT
  Age: 7 Year
  Sex: Male

DRUGS (11)
  1. EPIDIOLEX [Suspect]
     Active Substance: CANNABIDIOL
     Indication: Product used for unknown indication
     Dosage: 2.4 ML TWICE A DAY ORAL?
     Route: 048
     Dates: start: 20201105, end: 20220421
  2. ALBUTEROL [Concomitant]
     Active Substance: ALBUTEROL
  3. AMLODIPINE [Concomitant]
     Active Substance: AMLODIPINE BESYLATE
  4. CALCIUM CARBONATE 1250MG/5ML [Concomitant]
  5. CETIRIZINE 5 [Concomitant]
  6. CLONAZEPAM odt .25MG [Concomitant]
  7. FAMOTIDINE 10MG TABS [Concomitant]
  8. FOSPHENYTOIN 100MG/2ML [Concomitant]
  9. GLYCOPYRROLATE [Concomitant]
     Active Substance: GLYCOPYRROLATE
  10. LEVOCARNITINE [Concomitant]
     Active Substance: LEVOCARNITINE
  11. MAGNESIUM 250MG [Concomitant]

REACTIONS (1)
  - Death [None]

NARRATIVE: CASE EVENT DATE: 20220421
